FAERS Safety Report 5637333-7 (Version None)
Quarter: 2008Q1

REPORT INFORMATION
  Report Type: 
  Country: None (occurrence: None)
  Receive Date: 20080225
  Receipt Date: 20080215
  Transmission Date: 20080703
  Serious: Yes (Hospitalization)
  Sender: FDA-Public Use
  Company Number: DE-PFIZER INC-2007099461

PATIENT
  Sex: Female
  Weight: 86 kg

DRUGS (12)
  1. EXUBERA [Suspect]
     Indication: TYPE 2 DIABETES MELLITUS
     Dosage: DAILY DOSE:6MG
     Route: 055
     Dates: start: 20071003, end: 20071116
  2. AGGRENOX [Concomitant]
     Route: 048
  3. ATACAND HCT [Concomitant]
     Route: 048
  4. METODURA [Concomitant]
     Route: 048
  5. FURO [Concomitant]
     Route: 048
  6. EUTHYROX [Concomitant]
     Route: 048
  7. PANTOZOL [Concomitant]
     Route: 048
  8. GABAPENTIN [Concomitant]
     Route: 048
  9. ALL OTHER THERAPEUTIC PRODUCTS [Concomitant]
     Route: 048
  10. MAGNESIOCARD [Concomitant]
     Route: 048
  11. NOVONORM [Concomitant]
     Route: 048
  12. SIOFOR [Concomitant]
     Route: 048

REACTIONS (4)
  - BRONCHITIS CHRONIC [None]
  - DYSGEUSIA [None]
  - HYPERSENSITIVITY [None]
  - PULMONARY FUNCTION TEST DECREASED [None]
